FAERS Safety Report 8816050 (Version 1)
Quarter: 2012Q4

REPORT INFORMATION
  Report Type: 
  Country: US (occurrence: US)
  Receive Date: 20120928
  Receipt Date: 20120928
  Transmission Date: 20130627
  Serious: No
  Sender: FDA-Public Use
  Company Number: US-BAYER-2012-089946

PATIENT
  Age: 52 Year
  Sex: Male

DRUGS (1)
  1. CIPRO [Suspect]

REACTIONS (9)
  - Myalgia [None]
  - Myalgia [None]
  - Myalgia [None]
  - Mobility decreased [None]
  - Mobility decreased [None]
  - Arthralgia [None]
  - Pain in extremity [None]
  - Gait disturbance [None]
  - Groin pain [None]
